FAERS Safety Report 8586735-8 (Version None)
Quarter: 2012Q3

REPORT INFORMATION
  Report Type: 
  Country: None (occurrence: None)
  Receive Date: 20120810
  Receipt Date: 20120802
  Transmission Date: 20120928
  Serious: Yes (Hospitalization)
  Sender: FDA-Public Use
  Company Number: US-UCBSA-063022

PATIENT
  Age: 50 Year
  Sex: Female
  Weight: 101 kg

DRUGS (27)
  1. POTASSIUM CHLORIDE [Concomitant]
     Indication: HYPOKALAEMIA
     Route: 048
     Dates: start: 20120301
  2. MESALAMINE [Concomitant]
     Dates: start: 20030826, end: 20050422
  3. FOLIC ACID [Concomitant]
     Indication: FOLATE DEFICIENCY
     Route: 048
     Dates: start: 20110301
  4. PROMETHAZINE [Concomitant]
     Indication: NAUSEA
     Route: 048
     Dates: start: 20101101
  5. PREDNISONE TAB [Concomitant]
     Dates: start: 20090701
  6. AZELASTINE HCL [Concomitant]
     Indication: SEASONAL ALLERGY
     Dosage: 1 SPRAY; INTRANASAL
     Route: 045
     Dates: start: 20111115
  7. CIMZIA [Suspect]
     Indication: CROHN'S DISEASE
     Route: 058
     Dates: start: 20091031, end: 20110615
  8. MESALAMINE [Concomitant]
     Dates: start: 20090508
  9. METHOTREXATE [Concomitant]
     Indication: CROHN'S DISEASE
     Dates: start: 20030425, end: 20030101
  10. ZOLPIDEM [Concomitant]
     Indication: INSOMNIA
     Route: 048
     Dates: start: 20111115
  11. FUROSEMIDE [Concomitant]
     Indication: OEDEMA PERIPHERAL
     Route: 048
     Dates: start: 20120301
  12. MESALAMINE [Concomitant]
     Indication: CROHN'S DISEASE
     Dates: start: 20010101, end: 20030826
  13. MESALAMINE [Concomitant]
     Dates: start: 20050504, end: 20090508
  14. METHOTREXATE [Concomitant]
     Dates: start: 20060301, end: 20060801
  15. WARFARIN SODIUM [Concomitant]
     Indication: THROMBOSIS PROPHYLAXIS
     Route: 048
     Dates: start: 20101127
  16. CALCIUM CARBONATE [Concomitant]
     Indication: GASTROOESOPHAGEAL REFLUX DISEASE
     Dosage: 2 TABS
     Route: 048
     Dates: start: 20010101
  17. COLESTIDE [Concomitant]
     Indication: DIARRHOEA
     Dosage: 4 TABS
     Route: 048
     Dates: start: 20111219
  18. PREDNISONE TAB [Concomitant]
     Dates: start: 20060118, end: 20080401
  19. MIRTAZAPINE [Concomitant]
     Indication: DEPRESSION
     Route: 048
     Dates: start: 20100101
  20. DEXILANT [Concomitant]
     Indication: GASTROOESOPHAGEAL REFLUX DISEASE
     Route: 048
     Dates: start: 20111101
  21. DICYLCOMINE [Concomitant]
     Indication: ABDOMINAL TENDERNESS
     Route: 048
     Dates: start: 20111005
  22. PREDNISONE TAB [Concomitant]
     Indication: CROHN'S DISEASE
     Dates: start: 19870101, end: 20050201
  23. PREDNISONE TAB [Concomitant]
     Dates: start: 20110728
  24. METHOTREXATE [Concomitant]
     Dates: start: 20090201
  25. METFORMIN HYDROCHLORIDE [Concomitant]
     Indication: DIABETES MELLITUS
     Route: 048
     Dates: start: 20111115
  26. BUPROPION HCL [Concomitant]
     Indication: DEPRESSION
     Route: 048
     Dates: start: 20090101
  27. GLIMEPIRIDE [Concomitant]
     Indication: DIABETES MELLITUS
     Route: 048
     Dates: start: 20111115

REACTIONS (1)
  - SEPTIC SHOCK [None]
